FAERS Safety Report 20047081 (Version 3)
Quarter: 2022Q1

REPORT INFORMATION
  Report Type: Report from Study
  Country: US (occurrence: US)
  Receive Date: 20211109
  Receipt Date: 20220120
  Transmission Date: 20220423
  Serious: No
  Sender: FDA-Public Use
  Company Number: US-NOVARTISTESTPH-NVSC2021US254562

PATIENT
  Age: 64 Year
  Sex: Male

DRUGS (1)
  1. ENTRESTO [Suspect]
     Active Substance: SACUBITRIL\VALSARTAN
     Indication: Product used for unknown indication
     Dosage: 1 DF, BID
     Route: 048
     Dates: start: 20211008

REACTIONS (6)
  - Feeling abnormal [Unknown]
  - Memory impairment [Unknown]
  - Irritability [Unknown]
  - Cough [Unknown]
  - Blood pressure decreased [Unknown]
  - Influenza [Unknown]

NARRATIVE: CASE EVENT DATE: 20211102
